FAERS Safety Report 24585590 (Version 1)
Quarter: 2024Q4

REPORT INFORMATION
  Report Type: Report from Study
  Country: US (occurrence: US)
  Receive Date: 20241106
  Receipt Date: 20241106
  Transmission Date: 20250115
  Serious: Yes (Other)
  Sender: SUNOVION
  Company Number: US-SMPA-2024SPA004582

PATIENT

DRUGS (8)
  1. LATUDA [Suspect]
     Active Substance: LURASIDONE HYDROCHLORIDE
     Indication: Bipolar disorder
     Dosage: UNK
     Route: 048
  2. VIVITROL [Suspect]
     Active Substance: NALTREXONE
     Indication: Alcoholism
     Dosage: 380 MG, Q4WEEKS
     Route: 030
     Dates: start: 20240816
  3. VIVITROL [Suspect]
     Active Substance: NALTREXONE
     Dosage: 380 MG, Q4WEEKS
     Route: 030
     Dates: start: 20240916
  4. PRAZOSIN HYDROCHLORIDE [Suspect]
     Active Substance: PRAZOSIN HYDROCHLORIDE
     Indication: Sleep disorder
     Dosage: 4 MG
     Route: 048
     Dates: start: 202409
  5. PRAZOSIN HYDROCHLORIDE [Suspect]
     Active Substance: PRAZOSIN HYDROCHLORIDE
     Dosage: 5 MG
     Route: 048
     Dates: start: 202409
  6. VISTARIL [Suspect]
     Active Substance: HYDROXYZINE PAMOATE
     Indication: Depression
     Dosage: UNK
     Route: 065
  7. CLONIDINE [Suspect]
     Active Substance: CLONIDINE
     Indication: Product used for unknown indication
     Dosage: UNK
     Route: 065
  8. REMERON [Concomitant]
     Active Substance: MIRTAZAPINE
     Dosage: UNK
     Route: 065

REACTIONS (3)
  - Syncope [Unknown]
  - Back injury [Unknown]
  - Hypotension [Unknown]

NARRATIVE: CASE EVENT DATE: 20240917
